FAERS Safety Report 7669700-4 (Version None)
Quarter: 2011Q3

REPORT INFORMATION
  Report Type: 
  Country: None (occurrence: None)
  Receive Date: 20110803
  Receipt Date: 20110719
  Transmission Date: 20111222
  Serious: Yes (Other)
  Sender: FDA-Public Use
  Company Number: 2011MA009044

PATIENT
  Age: 59 Year
  Sex: Female

DRUGS (2)
  1. CISPLATIN [Suspect]
     Indication: LUNG NEOPLASM MALIGNANT
  2. VINORELBINE [Suspect]
     Indication: LUNG NEOPLASM MALIGNANT

REACTIONS (1)
  - RADIATION PNEUMONITIS [None]
